FAERS Safety Report 14034902 (Version 2)
Quarter: 2017Q4

REPORT INFORMATION
  Report Type: Spontaneous
  Country: US (occurrence: US)
  Receive Date: 20171003
  Receipt Date: 20171120
  Transmission Date: 20180321
  Serious: Yes (Hospitalization)
  Sender: FDA-Public Use
  Company Number: US-VIFOR (INTERNATIONAL) INC.-VIT-2017-09994

PATIENT
  Age: 68 Year
  Sex: Male

DRUGS (17)
  1. ALLOPURINOL. [Concomitant]
     Active Substance: ALLOPURINOL
  2. CARVEDILOL. [Concomitant]
     Active Substance: CARVEDILOL
  3. GABAPENTIN. [Concomitant]
     Active Substance: GABAPENTIN
  4. OMEPRAZOLE. [Concomitant]
     Active Substance: OMEPRAZOLE
  5. HYDROCODONE-ACETAMINOPHEN [Concomitant]
     Active Substance: ACETAMINOPHEN\HYDROCODONE
  6. LORATADINE. [Concomitant]
     Active Substance: LORATADINE
  7. MECLOZINE HYDROCHLORIDE [Concomitant]
     Active Substance: MECLOZINE DIHYDROCHLORIDE
  8. NIFEDIAC CC [Concomitant]
     Active Substance: NIFEDIPINE
  9. BUMETANIDE. [Concomitant]
     Active Substance: BUMETANIDE
  10. FLUOXETINE HYDROCHLORIDE. [Concomitant]
     Active Substance: FLUOXETINE HYDROCHLORIDE
  11. LISINOPRIL. [Concomitant]
     Active Substance: LISINOPRIL
  12. GUAIFENESIN. [Concomitant]
     Active Substance: GUAIFENESIN
  13. VELTASSA [Suspect]
     Active Substance: PATIROMER
     Indication: HYPERKALAEMIA
     Route: 048
     Dates: start: 20160824
  14. DICYCLOVERINE HYDROCHLORIDE [Concomitant]
     Active Substance: DICYCLOMINE HYDROCHLORIDE
  15. PENTOXIFYLLINE. [Concomitant]
     Active Substance: PENTOXIFYLLINE
  16. GLYBURIDE. [Concomitant]
     Active Substance: GLYBURIDE
  17. HYDROCHLOROTHIAZIDE. [Concomitant]
     Active Substance: HYDROCHLOROTHIAZIDE

REACTIONS (2)
  - Rehabilitation therapy [Unknown]
  - Hospitalisation [Unknown]

NARRATIVE: CASE EVENT DATE: 2017
